FAERS Safety Report 20862814 (Version 1)
Quarter: 2022Q2

REPORT INFORMATION
  Report Type: Report from Study
  Country: US (occurrence: US)
  Receive Date: 20220523
  Receipt Date: 20220523
  Transmission Date: 20220720
  Serious: Yes (Other)
  Sender: FDA-Public Use
  Company Number: US-ASTELLAS-2022US018048

PATIENT
  Age: 85 Year
  Sex: Male

DRUGS (1)
  1. MIRABEGRON [Suspect]
     Active Substance: MIRABEGRON
     Indication: Product used for unknown indication
     Route: 048

REACTIONS (7)
  - Foreign body in throat [Unknown]
  - Productive cough [Unknown]
  - Hypoaesthesia [Unknown]
  - Feeling hot [Unknown]
  - Dysphonia [Unknown]
  - Vocal cord dysfunction [Unknown]
  - Erythema [Unknown]

NARRATIVE: CASE EVENT DATE: 20220513
